FAERS Safety Report 7822344-3 (Version None)
Quarter: 2011Q4

REPORT INFORMATION
  Report Type: 
  Country: None (occurrence: None)
  Receive Date: 20111018
  Receipt Date: 20111006
  Transmission Date: 20120403
  Serious: Yes (Hospitalization)
  Sender: FDA-Public Use
  Company Number: MX-ELI_LILLY_AND_COMPANY-MX201110002088

PATIENT
  Sex: Male

DRUGS (3)
  1. HUMALOG [Suspect]
     Dosage: UNK UNK, PRN
     Route: 058
     Dates: start: 20020101
  2. HUMALOG [Suspect]
     Indication: TYPE 1 DIABETES MELLITUS
     Dosage: 10 U, TID
     Route: 058
     Dates: start: 20020101
  3. LANTUS [Concomitant]
     Dosage: UNK, QD
     Dates: start: 20020101, end: 20111005

REACTIONS (6)
  - INJURY [None]
  - LIMB INJURY [None]
  - ACCIDENT [None]
  - DIABETES MELLITUS INADEQUATE CONTROL [None]
  - FACE INJURY [None]
  - HYPERGLYCAEMIA [None]
